FAERS Safety Report 7396138-X (Version None)
Quarter: 2011Q2

REPORT INFORMATION
  Report Type: 
  Country: None (occurrence: None)
  Receive Date: 20110406
  Receipt Date: 20110325
  Transmission Date: 20111010
  Serious: Yes (Death, Life-Threatening, Other)
  Sender: FDA-Public Use
  Company Number: FR-BAYER-2011-026106

PATIENT
  Age: 80 Year
  Sex: Female

DRUGS (2)
  1. TAVANIC [Concomitant]
     Indication: LUNG INFECTION
  2. MOXIFLOXACIN HCL [Suspect]
     Indication: LUNG INFECTION
     Route: 042

REACTIONS (3)
  - CARDIAC ARREST [None]
  - VENTRICULAR TACHYCARDIA [None]
  - COMA [None]
